FAERS Safety Report 11603837 (Version 1)
Quarter: 2015Q4

REPORT INFORMATION
  Report Type: Report from Study
  Country: BR (occurrence: BR)
  Receive Date: 20151007
  Receipt Date: 20151007
  Transmission Date: 20160304
  Serious: Yes (Disabling, Other)
  Sender: FDA-Public Use
  Company Number: BR-ABBVIE-15K-020-1474214-00

PATIENT
  Age: 64 Year
  Sex: Female
  Weight: 63 kg

DRUGS (4)
  1. HUMIRA [Suspect]
     Active Substance: ADALIMUMAB
     Indication: RHEUMATOID ARTHRITIS
     Route: 065
     Dates: end: 201503
  2. HIDROMED [Concomitant]
     Active Substance: HYDROCHLOROTHIAZIDE
     Indication: HYPERTENSION
     Route: 048
     Dates: start: 2000
  3. CIMZIA [Concomitant]
     Active Substance: CERTOLIZUMAB PEGOL
     Indication: RHEUMATOID ARTHRITIS
     Route: 058
     Dates: start: 201503
  4. LOSARTAN. [Concomitant]
     Active Substance: LOSARTAN
     Indication: HYPERTENSION
     Route: 048

REACTIONS (9)
  - Hand deformity [Not Recovered/Not Resolved]
  - Swelling face [Not Recovered/Not Resolved]
  - Anaemia [Recovering/Resolving]
  - Arthralgia [Not Recovered/Not Resolved]
  - Incorrect route of drug administration [Unknown]
  - Foot deformity [Not Recovered/Not Resolved]
  - Activities of daily living impaired [Unknown]
  - Gait disturbance [Not Recovered/Not Resolved]
  - Joint swelling [Not Recovered/Not Resolved]

NARRATIVE: CASE EVENT DATE: 201503
